FAERS Safety Report 12544865 (Version 1)
Quarter: 2016Q3

REPORT INFORMATION
  Report Type: Spontaneous
  Country: US (occurrence: US)
  Receive Date: 20160711
  Receipt Date: 20160711
  Transmission Date: 20161109
  Serious: No
  Sender: FDA-Public Use
  Company Number: US-WEST-WARD PHARMACEUTICALS CORP.-US-H14001-16-00524

PATIENT
  Sex: Female

DRUGS (1)
  1. BUTALBITAL, ACETAMINOPHEN + CAFFEINE TABLETS USP [Suspect]
     Active Substance: ACETAMINOPHEN\BUTALBITAL\CAFFEINE
     Indication: PRODUCT USED FOR UNKNOWN INDICATION
     Route: 065

REACTIONS (2)
  - Gluten sensitivity [Unknown]
  - Abdominal pain upper [Unknown]
